FAERS Safety Report 6188333-2 (Version None)
Quarter: 2009Q2

REPORT INFORMATION
  Report Type: 
  Country: None (occurrence: None)
  Receive Date: 20090513
  Receipt Date: 20090403
  Transmission Date: 20091009
  Serious: Yes (Death)
  Sender: FDA-Public Use
  Company Number: US-JNJFOC-20090501031

PATIENT

DRUGS (2)
  1. FENTANYL [Suspect]
     Indication: ANALGESIA
     Route: 062
  2. CERTOLIZUMAB PEGOL [Suspect]
     Indication: CROHN'S DISEASE
     Route: 065

REACTIONS (1)
  - OVERDOSE [None]
